FAERS Safety Report 4537046-9 (Version None)
Quarter: 2004Q4

REPORT INFORMATION
  Report Type: 
  Country: None (occurrence: None)
  Receive Date: 20041223
  Receipt Date: 20040915
  Transmission Date: 20050328
  Serious: No
  Sender: FDA-Public Use
  Company Number: US-BRISTOL-MYERS SQUIBB COMPANY-12706362

PATIENT

DRUGS (1)
  1. REYATAZ [Suspect]
     Dosage: PATIENT HAS BEEN ON ATAZANAVIR FOR A LITTLE OVER A YEAR.

REACTIONS (1)
  - BLOOD TRIGLYCERIDES ABNORMAL [None]
